FAERS Safety Report 20619424 (Version 5)
Quarter: 2024Q1

REPORT INFORMATION
  Report Type: Report from Study
  Country: JP (occurrence: JP)
  Receive Date: 20220322
  Receipt Date: 20240208
  Transmission Date: 20240410
  Serious: Yes (Hospitalization, Other)
  Sender: FDA-Public Use
  Company Number: JP-CELLTRION INC.-2020JP024384

PATIENT

DRUGS (12)
  1. INFLIXIMAB-DYYB [Suspect]
     Active Substance: INFLIXIMAB-DYYB
     Indication: Colitis ulcerative
     Dosage: 320 MG (WEIGHT: 64KG)
     Route: 041
     Dates: start: 20181124, end: 20181124
  2. INFLIXIMAB-DYYB [Suspect]
     Active Substance: INFLIXIMAB-DYYB
     Dosage: 325 MG (WEIGHT: 65 KG)
     Route: 041
     Dates: start: 20190119, end: 20190119
  3. INFLIXIMAB-DYYB [Suspect]
     Active Substance: INFLIXIMAB-DYYB
     Dosage: 325 MG (WEIGHT: 65 KG)
     Route: 041
     Dates: start: 20190310, end: 20190310
  4. INFLIXIMAB-DYYB [Suspect]
     Active Substance: INFLIXIMAB-DYYB
     Dosage: 325 MG (WEIGHT: 65 KG)
     Route: 041
     Dates: start: 20190512, end: 20190512
  5. INFLIXIMAB-DYYB [Suspect]
     Active Substance: INFLIXIMAB-DYYB
     Dosage: 325 MG (WEIGHT: 65KG)
     Route: 041
     Dates: start: 20191102, end: 20191102
  6. INFLIXIMAB-DYYB [Suspect]
     Active Substance: INFLIXIMAB-DYYB
     Dosage: 320 MG (WEIGHT: 63.8 KG)
     Route: 041
     Dates: start: 20201205, end: 20201205
  7. INFLIXIMAB-DYYB [Suspect]
     Active Substance: INFLIXIMAB-DYYB
     Dosage: 325 MG (WEIGHT: 65 KG)
     Route: 041
     Dates: start: 20211205, end: 20211205
  8. INFLIXIMAB-DYYB [Suspect]
     Active Substance: INFLIXIMAB-DYYB
     Dosage: 320 MG (WEIGHT: 63.9 KG)
     Route: 041
     Dates: start: 20221204, end: 20221204
  9. INFLIXIMAB-DYYB [Suspect]
     Active Substance: INFLIXIMAB-DYYB
     Dosage: 315 MG (WEIGHT: 63.2 KG)
     Route: 041
     Dates: start: 20231203, end: 20231203
  10. MESALAMINE [Concomitant]
     Active Substance: MESALAMINE
     Dosage: 3600 MG, QD
     Route: 048
  11. SULFASALAZINE [Concomitant]
     Active Substance: SULFASALAZINE
     Indication: Colitis ulcerative
     Dosage: 1000 MG, QD
     Route: 048
     Dates: start: 20200229
  12. SULFASALAZINE [Concomitant]
     Active Substance: SULFASALAZINE
     Indication: Arthralgia

REACTIONS (9)
  - Spinal stenosis [Recovered/Resolved]
  - Cataract [Recovered/Resolved]
  - COVID-19 [Recovered/Resolved]
  - Stomatitis [Unknown]
  - Stomatitis [Recovered/Resolved]
  - Flank pain [Recovered/Resolved]
  - Arthralgia [Not Recovered/Not Resolved]
  - Nasopharyngitis [Unknown]
  - Product use issue [Unknown]

NARRATIVE: CASE EVENT DATE: 20190911
